FAERS Safety Report 25107338 (Version 2)
Quarter: 2025Q1

REPORT INFORMATION
  Report Type: Spontaneous
  Country: US (occurrence: US)
  Receive Date: 20250321
  Receipt Date: 20250328
  Transmission Date: 20250409
  Serious: No
  Sender: PFIZER
  Company Number: US-PFIZER INC-202500060341

PATIENT
  Age: 83 Year
  Sex: Female

DRUGS (19)
  1. XELJANZ [Suspect]
     Active Substance: TOFACITINIB CITRATE
  2. COENZYME Q10 [Concomitant]
     Active Substance: DIETARY SUPPLEMENT\UBIDECARENONE
  3. LISINOPRIL [Concomitant]
     Active Substance: LISINOPRIL
  4. LASIX [Concomitant]
     Active Substance: FUROSEMIDE
  5. FENOFIBRATE [Concomitant]
     Active Substance: FENOFIBRATE
  6. ULORIC [Concomitant]
     Active Substance: FEBUXOSTAT
  7. LEVOTHYROXINE [Concomitant]
     Active Substance: LEVOTHYROXINE
  8. GABAPENTIN [Concomitant]
     Active Substance: GABAPENTIN
  9. FLONASE [Concomitant]
     Active Substance: FLUTICASONE PROPIONATE
  10. ASPIRIN\CAFFEINE [Concomitant]
     Active Substance: ASPIRIN\CAFFEINE
  11. VITAMIN D3 [Concomitant]
     Active Substance: CHOLECALCIFEROL
  12. VITAMINS NOS [Concomitant]
     Active Substance: VITAMINS
  13. VITAMIN B12 [Concomitant]
     Active Substance: CYANOCOBALAMIN
  14. VITAMIN C [Concomitant]
     Active Substance: ASCORBIC ACID
  15. MAGNESIUM [Concomitant]
     Active Substance: MAGNESIUM
  16. CRANBERRY [Concomitant]
     Active Substance: CRANBERRY
  17. PRILOSEC [Concomitant]
     Active Substance: OMEPRAZOLE MAGNESIUM
  18. PROCTOZONE HC [Concomitant]
     Active Substance: HYDROCORTISONE
  19. NITROGLYCERIN [Concomitant]
     Active Substance: NITROGLYCERIN

REACTIONS (2)
  - Arthritis [Unknown]
  - Dysgraphia [Unknown]
